FAERS Safety Report 6746552-8 (Version None)
Quarter: 2010Q2

REPORT INFORMATION
  Report Type: 
  Country: None (occurrence: None)
  Receive Date: 20100528
  Receipt Date: 20100524
  Transmission Date: 20101027
  Serious: Yes (Other)
  Sender: FDA-Public Use
  Company Number: AU-ROCHE-704899

PATIENT
  Sex: Male

DRUGS (1)
  1. PEGASYS [Suspect]
     Indication: HEPATITIS C
     Dosage: OTHER INDICATION:MULTIFOCAL HEPATOMA
     Route: 065

REACTIONS (1)
  - HEPATIC NEOPLASM MALIGNANT [None]
